FAERS Safety Report 24335047 (Version 1)
Quarter: 2024Q3

REPORT INFORMATION
  Report Type: Spontaneous
  Country: US (occurrence: US)
  Receive Date: 20240918
  Receipt Date: 20240918
  Transmission Date: 20241016
  Serious: Yes (Other)
  Sender: BRISTOL MYERS SQUIBB
  Company Number: US-BRISTOL-MYERS SQUIBB COMPANY-2024-147853

PATIENT
  Age: 65 Year
  Sex: Female

DRUGS (3)
  1. NIVOLUMAB [Suspect]
     Active Substance: NIVOLUMAB
     Indication: Acral lentiginous melanoma stage IV
  2. IPILIMUMAB [Suspect]
     Active Substance: IPILIMUMAB
     Indication: Acral lentiginous melanoma stage IV
  3. PEMBROLIZUMAB [Concomitant]
     Active Substance: PEMBROLIZUMAB
     Indication: Acral lentiginous melanoma stage IV

REACTIONS (3)
  - Hyperkeratosis [Recovered/Resolved]
  - Immune-mediated enterocolitis [Recovered/Resolved]
  - Squamous cell carcinoma [Unknown]
